FAERS Safety Report 7495452-7 (Version None)
Quarter: 2011Q2

REPORT INFORMATION
  Report Type: 
  Country: None (occurrence: None)
  Receive Date: 20110523
  Receipt Date: 20110419
  Transmission Date: 20111010
  Serious: No
  Sender: FDA-Public Use
  Company Number: US-TYCO HEALTHCARE/MALLINCKRODT-T201100817

PATIENT
  Sex: Female

DRUGS (4)
  1. PERCOCET [Concomitant]
     Indication: BREAKTHROUGH PAIN
  2. FENTANYL-100 [Suspect]
     Indication: ARTHRITIS
     Dosage: 1 PATCH EVERY 48 HOURS
     Dates: start: 20110414
  3. PSYCH MEDS [Concomitant]
     Dosage: UNK
  4. FENTANYL-100 [Suspect]
     Indication: SYSTEMIC LUPUS ERYTHEMATOSUS

REACTIONS (1)
  - DRUG INEFFECTIVE [None]
